FAERS Safety Report 16841593 (Version 4)
Quarter: 2019Q4

REPORT INFORMATION
  Report Type: Report from Study
  Country: JP (occurrence: JP)
  Receive Date: 20190923
  Receipt Date: 20191125
  Transmission Date: 20200122
  Serious: Yes (Other)
  Sender: FDA-Public Use
  Company Number: JP-009507513-1909JPN001853J

PATIENT
  Age: 48 Year
  Sex: Female
  Weight: 37 kg

DRUGS (25)
  1. ENDOXAN [Concomitant]
     Active Substance: CYCLOPHOSPHAMIDE
     Dosage: UNK
     Route: 065
  2. PREVYMIS [Suspect]
     Active Substance: LETERMOVIR
     Indication: ANTIVIRAL PROPHYLAXIS
     Dosage: 480 MILLIGRAM, QD
     Route: 048
     Dates: start: 20181231, end: 20190321
  3. TAKEPRON [Concomitant]
     Active Substance: LANSOPRAZOLE
     Dosage: 60 MILLIGRAM, QD
     Route: 051
     Dates: start: 20181219, end: 20181230
  4. METHOTREXATE. [Concomitant]
     Active Substance: METHOTREXATE
     Dosage: UNK
     Route: 065
  5. MAGNESIUM SULFATE. [Concomitant]
     Active Substance: MAGNESIUM SULFATE
     Dosage: UNK
     Route: 065
     Dates: start: 20181219, end: 20190208
  6. ASPARA POTASSIUM [Concomitant]
     Active Substance: POTASSIUM ASPARTATE
     Dosage: UNK
     Route: 051
     Dates: start: 20181219, end: 20181227
  7. PRIMPERAN [Concomitant]
     Active Substance: METOCLOPRAMIDE HYDROCHLORIDE
     Dosage: 10 MILLIGRAM, QD
     Route: 051
     Dates: start: 20181219, end: 20181219
  8. LETERMOVIR [Suspect]
     Active Substance: LETERMOVIR
     Indication: ANTIVIRAL PROPHYLAXIS
     Dosage: 480 MILLIGRAM, QD
     Route: 041
     Dates: start: 20181219, end: 20181230
  9. URSODEOXYCHOLIC ACID [Concomitant]
     Active Substance: URSODIOL
     Dosage: UNK UNK, TID,AFTER EACH MEAL
     Route: 048
  10. FUNGUARD [Concomitant]
     Active Substance: MICAFUNGIN SODIUM
     Dosage: SPEED SPECIFICATION
     Route: 051
     Dates: start: 20181219, end: 20190125
  11. FILGRASTIM(GENETICAL RECOMBINATION) [Concomitant]
     Active Substance: FILGRASTIM
     Dosage: 150 MICROGRAM, QD
     Route: 051
     Dates: start: 20181219, end: 20181230
  12. ACELIO [Concomitant]
     Active Substance: ACETAMINOPHEN
     Dosage: UNK
     Route: 051
     Dates: start: 20181219, end: 20190111
  13. LASIX [Concomitant]
     Active Substance: FUROSEMIDE
     Dosage: UNK
     Route: 051
     Dates: start: 20181219, end: 20190108
  14. VORICONAZOLE. [Suspect]
     Active Substance: VORICONAZOLE
     Dosage: UNK
     Route: 065
  15. CYLOCIDE [Concomitant]
     Active Substance: CYTARABINE
     Dosage: UNK
     Route: 065
  16. LEUCOVORIN. [Concomitant]
     Active Substance: LEUCOVORIN
     Dosage: 360 MILLIGRAM, QD
     Route: 051
     Dates: start: 20181224, end: 20181224
  17. FILGRASTIM(GENETICAL RECOMBINATION) [Concomitant]
     Active Substance: FILGRASTIM
     Dosage: 300 MICROGRAM, QD
     Route: 051
     Dates: start: 20181219, end: 20181229
  18. VANCOMYCIN [Concomitant]
     Active Substance: VANCOMYCIN
     Dosage: UNK
     Route: 041
     Dates: start: 20181219, end: 20181230
  19. PROGRAF [Concomitant]
     Active Substance: TACROLIMUS
     Dosage: UNK
     Route: 051
     Dates: start: 20181219, end: 20190114
  20. PRIMPERAN [Concomitant]
     Active Substance: METOCLOPRAMIDE HYDROCHLORIDE
     Dosage: 10 MILLIGRAM, QD
     Route: 051
     Dates: start: 20181222, end: 20181222
  21. AZUNOL [Concomitant]
     Dosage: 20 GRAM, AS DIRECTED BY THE DOCTOR
     Route: 065
     Dates: start: 20181222, end: 20181222
  22. BUSULFEX [Concomitant]
     Active Substance: BUSULFAN
     Dosage: UNK
     Route: 065
  23. ACLACINON [Concomitant]
     Active Substance: ACLARUBICIN HYDROCHLORIDE
     Dosage: UNK
     Route: 065
  24. LEUCOVORIN. [Concomitant]
     Active Substance: LEUCOVORIN
     Dosage: 36 MILLIGRAM, QD
     Route: 051
     Dates: start: 20181219, end: 20181219
  25. VICCLOX [Concomitant]
     Active Substance: ACYCLOVIR SODIUM
     Dosage: 750 MILLIGRAM, QD
     Route: 041
     Dates: start: 20181219, end: 20190109

REACTIONS (8)
  - Haemophagocytic lymphohistiocytosis [Unknown]
  - Drug level decreased [Recovered/Resolved]
  - Nausea [Unknown]
  - Appendicitis [Recovering/Resolving]
  - Chronic graft versus host disease [Unknown]
  - Aspergillus infection [Recovered/Resolved]
  - Adverse event [Unknown]
  - Aspergillus test positive [Recovered/Resolved]

NARRATIVE: CASE EVENT DATE: 20181226
